FAERS Safety Report 6654029-3 (Version None)
Quarter: 2010Q1

REPORT INFORMATION
  Report Type: 
  Country: None (occurrence: None)
  Receive Date: 20100326
  Receipt Date: 20100315
  Transmission Date: 20100710
  Serious: Yes (Hospitalization, Other)
  Sender: FDA-Public Use
  Company Number: US-ELI_LILLY_AND_COMPANY-US201002001972

PATIENT
  Sex: Female

DRUGS (1)
  1. FORTEO [Suspect]
     Indication: OSTEOPOROSIS
     Dosage: 20 UG, DAILY (1/D)
     Route: 058
     Dates: start: 20090618, end: 20091116

REACTIONS (11)
  - ABASIA [None]
  - ANGER [None]
  - ARTHRALGIA [None]
  - DYSSTASIA [None]
  - FACETECTOMY [None]
  - FORAMINOTOMY [None]
  - MOVEMENT DISORDER [None]
  - MYALGIA [None]
  - PROCEDURAL PAIN [None]
  - SPINAL FUSION SURGERY [None]
  - SPINAL LAMINECTOMY [None]
